FAERS Safety Report 5290697-9 (Version None)
Quarter: 2007Q2

REPORT INFORMATION
  Report Type: 
  Country: None (occurrence: None)
  Receive Date: 20070405
  Receipt Date: 20070405
  Transmission Date: 20071010
  Serious: Yes (Hospitalization)
  Sender: FDA-Public Use
  Company Number: None

PATIENT
  Age: 24 Year
  Sex: Male
  Weight: 88.4 kg

DRUGS (5)
  1. MYCOPHENOLATE MOFETIL [Suspect]
     Indication: IMMUNOSUPPRESSION
     Dosage: 500 MG PO BID
     Route: 048
     Dates: start: 20050918, end: 20061009
  2. M.V.I. [Concomitant]
  3. NIZATIDINE [Concomitant]
  4. MGO [Concomitant]
  5. TACROLIMUS [Concomitant]

REACTIONS (2)
  - DIARRHOEA [None]
  - PYREXIA [None]
